FAERS Safety Report 12145515 (Version 5)
Quarter: 2016Q3

REPORT INFORMATION
  Report Type: Report from Study
  Country: US (occurrence: US)
  Receive Date: 20160304
  Receipt Date: 20160817
  Transmission Date: 20161109
  Serious: Yes (Other)
  Sender: FDA-Public Use
  Company Number: US-AMGEN-USASL2016025061

PATIENT
  Age: 44 Year
  Sex: Female
  Weight: 100.68 kg

DRUGS (1)
  1. ENBREL [Suspect]
     Active Substance: ETANERCEPT
     Indication: PSORIATIC ARTHROPATHY
     Dosage: 50 MG, QWK
     Route: 065
     Dates: start: 20160129

REACTIONS (7)
  - Biopsy [Recovered/Resolved]
  - Fungal skin infection [Recovered/Resolved]
  - Drug effect incomplete [Unknown]
  - Post procedural infection [Recovered/Resolved]
  - Dyspnoea [Unknown]
  - Pharyngitis streptococcal [Unknown]
  - Injection site pain [Unknown]

NARRATIVE: CASE EVENT DATE: 2016
